FAERS Safety Report 11387615 (Version 1)
Quarter: 2015Q3

REPORT INFORMATION
  Report Type: Spontaneous
  Country: US (occurrence: US)
  Receive Date: 20150817
  Receipt Date: 20150817
  Transmission Date: 20151125
  Serious: Yes (Other)
  Sender: FDA-Public Use
  Company Number: US-PFIZER INC-2015261420

PATIENT

DRUGS (1)
  1. ADVIL [Suspect]
     Active Substance: IBUPROFEN
     Dosage: ^800^, 3X/DAY

REACTIONS (3)
  - Cardiac disorder [Unknown]
  - Prescribed overdose [Unknown]
  - Thrombosis [Unknown]
